FAERS Safety Report 17947003 (Version 1)
Quarter: 2020Q2

REPORT INFORMATION
  Report Type: Report from Study
  Country: BR (occurrence: BR)
  Receive Date: 20200625
  Receipt Date: 20200625
  Transmission Date: 20200714
  Serious: Yes (Other)
  Sender: FDA-Public Use
  Company Number: NVSC2020BR082820

PATIENT
  Age: 58 Year
  Sex: Female

DRUGS (1)
  1. COSENTYX [Suspect]
     Active Substance: SECUKINUMAB
     Indication: PSORIASIS
     Dosage: 300 MG, UNKNOWN
     Route: 065
     Dates: start: 20200309, end: 20200409

REACTIONS (7)
  - Device leakage [Unknown]
  - Incorrect dose administered by device [Unknown]
  - Oral candidiasis [Recovered/Resolved]
  - Device malfunction [Unknown]
  - Diabetes mellitus [Unknown]
  - Herpes virus infection [Recovered/Resolved]
  - Immune system disorder [Recovering/Resolving]

NARRATIVE: CASE EVENT DATE: 20200316
